FAERS Safety Report 6370919-3 (Version None)
Quarter: 2009Q3

REPORT INFORMATION
  Report Type: 
  Country: None (occurrence: None)
  Receive Date: 20090923
  Receipt Date: 20070509
  Transmission Date: 20100115
  Serious: No
  Sender: FDA-Public Use
  Company Number: US-ASTRAZENECA-2006UW22878

PATIENT
  Age: 35 Year
  Sex: Female
  Weight: 113.9 kg

DRUGS (11)
  1. SEROQUEL [Suspect]
     Indication: BIPOLAR DISORDER
     Route: 048
     Dates: start: 20030101, end: 20060601
  2. SEROQUEL [Suspect]
     Indication: DEPRESSION
     Route: 048
     Dates: start: 20030101, end: 20060601
  3. SEROQUEL [Suspect]
     Dosage: 300-800 MG
     Route: 048
     Dates: start: 20030818
  4. SEROQUEL [Suspect]
     Dosage: 300-800 MG
     Route: 048
     Dates: start: 20030818
  5. ZOLOFT [Concomitant]
     Route: 048
     Dates: start: 20030818
  6. AMITRIPTYLINE HYDROCHLORIDE [Concomitant]
     Route: 048
     Dates: start: 20030818
  7. MOTRIN [Concomitant]
     Indication: MUSCULOSKELETAL PAIN
     Dosage: 1800-2400 MG
     Route: 048
     Dates: start: 20030818
  8. CELEBREX [Concomitant]
     Dates: start: 20040827
  9. RANITIDINE HYDROCHLORIDE [Concomitant]
     Dates: start: 20040827
  10. NEURONTIN [Concomitant]
     Dates: start: 20040827
  11. LORATADINE [Concomitant]
     Indication: MULTIPLE ALLERGIES
     Route: 048
     Dates: start: 20060322

REACTIONS (3)
  - BLOOD CHOLESTEROL INCREASED [None]
  - DIABETES MELLITUS [None]
  - OBESITY [None]
